FAERS Safety Report 5063754-X (Version None)
Quarter: 2006Q3

REPORT INFORMATION
  Report Type: 
  Country: None (occurrence: None)
  Receive Date: 20060724
  Receipt Date: 20060608
  Transmission Date: 20061208
  Serious: Yes (Disabling, Other)
  Sender: FDA-Public Use
  Company Number: 2006088083

PATIENT
  Age: 68 Year
  Sex: Female

DRUGS (5)
  1. LIPITOR [Suspect]
     Indication: BLOOD CHOLESTEROL INCREASED
     Dosage: 50 MG (50 MG, 1 IN 1 D), ORAL
     Route: 048
  2. ACTOS [Concomitant]
  3. ALL OTHER THERAPEUTIC PRODUCTS (ALL OTHER THERAPEUTIC PRODUCTS) [Concomitant]
  4. METFORMIN (METFORMIN) [Concomitant]
  5. LANTUS [Concomitant]

REACTIONS (4)
  - BACK DISORDER [None]
  - MOBILITY DECREASED [None]
  - MYALGIA [None]
  - SOMNOLENCE [None]
